FAERS Safety Report 6714091-6 (Version None)
Quarter: 2010Q2

REPORT INFORMATION
  Report Type: 
  Country: None (occurrence: None)
  Receive Date: 20100506
  Receipt Date: 20100504
  Transmission Date: 20101027
  Serious: Yes (Other)
  Sender: FDA-Public Use
  Company Number: US-ROXANE LABORATORIES, INC.-2010-RO-00523RO

PATIENT
  Age: 49 Year
  Sex: Female

DRUGS (6)
  1. ZOLPIDEM [Suspect]
     Indication: INSOMNIA
     Dosage: 5 MG
     Dates: start: 20040601
  2. ZOLPIDEM [Suspect]
     Dosage: 10 MG
  3. ZOLPIDEM [Suspect]
     Dosage: 15 MG
     Dates: start: 20050101, end: 20060601
  4. ZALEPLON [Suspect]
     Indication: INSOMNIA
     Dosage: 10 MG
     Dates: start: 20060601, end: 20060701
  5. ZALEPLON [Suspect]
     Dosage: 20 MG
     Dates: start: 20060701, end: 20081101
  6. DULOXETINE HYDROCHLORIDE [Suspect]
     Indication: MAJOR DEPRESSION

REACTIONS (2)
  - DRUG INEFFECTIVE [None]
  - SLEEP-RELATED EATING DISORDER [None]
